FAERS Safety Report 4736349-2 (Version None)
Quarter: 2005Q3

REPORT INFORMATION
  Report Type: 
  Country: None (occurrence: None)
  Receive Date: 20050804
  Receipt Date: 20050726
  Transmission Date: 20060218
  Serious: Yes (Hospitalization)
  Sender: FDA-Public Use
  Company Number: 05USA0154

PATIENT
  Age: 32 Year
  Sex: Male

DRUGS (2)
  1. GLIADEL [Suspect]
     Indication: GLIOMA
     Dosage: 7.7 MG/WAFER; 8  WAFERS
     Dates: start: 20050712
  2. LOVENOX [Concomitant]

REACTIONS (2)
  - DEEP VEIN THROMBOSIS [None]
  - PAIN IN EXTREMITY [None]
